FAERS Safety Report 5501924-4 (Version None)
Quarter: 2007Q4

REPORT INFORMATION
  Report Type: 
  Country: None (occurrence: None)
  Receive Date: 20071030
  Receipt Date: 20071024
  Transmission Date: 20080405
  Serious: No
  Sender: FDA-Public Use
  Company Number: JP-SP-2007-03423

PATIENT
  Age: 78 Year
  Sex: Male

DRUGS (2)
  1. IMMUCYST [Suspect]
     Indication: BLADDER CANCER
     Route: 043
     Dates: start: 20061108, end: 20070131
  2. IMMUCYST [Suspect]
     Route: 043
     Dates: start: 20061108, end: 20070131

REACTIONS (2)
  - HAEMATURIA [None]
  - POLLAKIURIA [None]
